FAERS Safety Report 16515634 (Version 1)
Quarter: 2019Q3

REPORT INFORMATION
  Report Type: Spontaneous
  Country: JP (occurrence: JP)
  Receive Date: 20190702
  Receipt Date: 20190702
  Transmission Date: 20191004
  Serious: Yes (Other)
  Sender: FDA-Public Use
  Company Number: JP-PFIZER INC-2019268150

PATIENT
  Age: 85 Year
  Sex: Female

DRUGS (1)
  1. JZOLOFT OD 25MG [Suspect]
     Active Substance: SERTRALINE HYDROCHLORIDE
     Dosage: 25 MG, UNK
     Dates: start: 201706, end: 201707

REACTIONS (1)
  - Parkinsonism [Unknown]
